FAERS Safety Report 4368739-4 (Version None)
Quarter: 2004Q2

REPORT INFORMATION
  Report Type: 
  Country: None (occurrence: None)
  Receive Date: 20040528
  Receipt Date: 20040518
  Transmission Date: 20050107
  Serious: Yes (Life-Threatening)
  Sender: FDA-Public Use
  Company Number: 2004033675

PATIENT
  Age: 78 Year
  Sex: Female

DRUGS (5)
  1. DOXAZOSIN (DOXAZOSIN) [Suspect]
     Indication: HYPERTENSION
     Dosage: 12 MG (12 MG, EVERY DAY), ORAL
     Route: 048
     Dates: start: 20031101, end: 20040428
  2. PERINDOPRIL (PERINDOPRIL) [Concomitant]
  3. FUROSEMIDE [Concomitant]
  4. SIMVASTATIN [Concomitant]
  5. GLICLAZIDE (GLICLAZIDE) [Concomitant]

REACTIONS (1)
  - ANAPHYLACTIC REACTION [None]
